FAERS Safety Report 8862811 (Version 1)
Quarter: 2012Q4

REPORT INFORMATION
  Report Type: 
  Country: CA (occurrence: CA)
  Receive Date: 20121026
  Receipt Date: 20121026
  Transmission Date: 20130627
  Serious: Yes (Hospitalization, Other)
  Sender: FDA-Public Use
  Company Number: PHMT2006CA01039

PATIENT
  Sex: Female

DRUGS (11)
  1. SANDOSTATIN [Suspect]
     Indication: CARCINOID TUMOUR
     Dosage: 150 ug, ONCE/SINGLE
     Route: 058
     Dates: start: 20060406, end: 20060406
  2. SANDOSTATIN LAR [Suspect]
     Indication: CARCINOID TUMOUR
     Dosage: 30mg once a month
     Dates: start: 20060413
  3. SANDOSTATIN LAR [Suspect]
     Dosage: 20 mg, UNK
  4. ALTACE [Concomitant]
  5. DILANTIN [Concomitant]
  6. GABAPENTIN [Concomitant]
  7. HYDROCHLOROTHIAZIDE [Concomitant]
  8. LOMOTIL [Concomitant]
  9. TEMAZEPAM [Concomitant]
  10. TYLENOL [Concomitant]
  11. ZOCOR [Concomitant]

REACTIONS (8)
  - Cardiac disorder [Recovering/Resolving]
  - Asthenia [Unknown]
  - Blood count abnormal [Unknown]
  - Heart rate increased [Unknown]
  - Diarrhoea [Unknown]
  - Headache [Unknown]
  - Dizziness [Unknown]
  - Abdominal discomfort [Unknown]
